FAERS Safety Report 9724666 (Version 3)
Quarter: 2014Q1

REPORT INFORMATION
  Report Type: Spontaneous
  Country: TR (occurrence: TR)
  Receive Date: 20131202
  Receipt Date: 20140103
  Transmission Date: 20141002
  Serious: Yes (Hospitalization, Other)
  Sender: FDA-Public Use
  Company Number: TR-ABBVIE-13P-161-1173908-00

PATIENT
  Age: 52 Year
  Sex: Male
  Weight: 70 kg

DRUGS (1)
  1. HUMIRA [Suspect]
     Indication: ANKYLOSING SPONDYLITIS
     Route: 058
     Dates: start: 20130315, end: 20131119

REACTIONS (2)
  - Nephrolithiasis [Recovering/Resolving]
  - Renal abscess [Recovering/Resolving]
